FAERS Safety Report 9615134 (Version 2)
Quarter: 2013Q4

REPORT INFORMATION
  Report Type: Spontaneous
  Country: US (occurrence: US)
  Receive Date: 20131011
  Receipt Date: 20131011
  Transmission Date: 20140711
  Serious: No
  Sender: FDA-Public Use
  Company Number: US-PURDUE-USA-2013-0097299

PATIENT
  Age: 51 Year
  Sex: Male
  Weight: 85.26 kg

DRUGS (1)
  1. BUTRANS [Suspect]
     Indication: BACK PAIN
     Dosage: 20 MCG/HR, 1/WEEK
     Route: 062
     Dates: start: 2012

REACTIONS (5)
  - Drug effect decreased [Unknown]
  - Inadequate analgesia [Unknown]
  - Product adhesion issue [Unknown]
  - Application site pruritus [Not Recovered/Not Resolved]
  - Application site urticaria [Not Recovered/Not Resolved]
